FAERS Safety Report 5654446-4 (Version None)
Quarter: 2008Q1

REPORT INFORMATION
  Report Type: 
  Country: None (occurrence: None)
  Receive Date: 20080305
  Receipt Date: 20080221
  Transmission Date: 20080703
  Serious: Yes (Death, Other)
  Sender: FDA-Public Use
  Company Number: 07-002438

PATIENT
  Sex: 0

DRUGS (2)
  1. FEMCON FE [Suspect]
     Indication: CONTRACEPTION
     Dosage: 0.4MG/35 MCG; QD, ORAL, 0.4 MG/35 MCG, 1D, TRANSPLACENTAL
     Route: 048
     Dates: start: 20070405, end: 20070511
  2. FEMCON FE [Suspect]
     Indication: CONTRACEPTION
     Dosage: 0.4MG/35 MCG; QD, ORAL, 0.4 MG/35 MCG, 1D, TRANSPLACENTAL
     Route: 048
     Dates: start: 20070405

REACTIONS (3)
  - ABORTION INDUCED [None]
  - DRUG EXPOSURE DURING PREGNANCY [None]
  - PREGNANCY [None]
